FAERS Safety Report 6724480-1 (Version None)
Quarter: 2010Q2

REPORT INFORMATION
  Report Type: 
  Country: None (occurrence: None)
  Receive Date: 20100513
  Receipt Date: 20100429
  Transmission Date: 20101027
  Serious: Yes (Other)
  Sender: FDA-Public Use
  Company Number: DE-MYLANLABS-2010S1007591

PATIENT
  Sex: Female

DRUGS (1)
  1. OMEPRAZOLE [Suspect]
     Indication: ABDOMINAL SYMPTOM
     Dates: start: 20090101, end: 20100101

REACTIONS (1)
  - BLOOD CHROMOGRANIN A INCREASED [None]
